FAERS Safety Report 9307770 (Version 1)
Quarter: 2013Q2

REPORT INFORMATION
  Report Type: Spontaneous
  Country: US (occurrence: US)
  Receive Date: 20130524
  Receipt Date: 20130524
  Transmission Date: 20140414
  Serious: Yes (Other)
  Sender: FDA-Public Use
  Company Number: US-PFIZER INC-2013157981

PATIENT
  Age: 61 Year
  Sex: Female
  Weight: 65.31 kg

DRUGS (11)
  1. XELJANZ [Suspect]
     Dosage: 5 MG, 2X/DAY
     Route: 048
  2. FISH OIL [Concomitant]
     Dosage: UNK
  3. BIOTIN [Concomitant]
     Dosage: UNK, 5000
  4. FOLIC ACID [Concomitant]
     Dosage: UNK
  5. MUCINEX DM [Concomitant]
     Dosage: UNK,60-1200
  6. ALLEGRA [Concomitant]
     Dosage: 30 MG, UNK
  7. BUDESONIDE [Concomitant]
     Dosage: UNK, 0.5 MG/2
  8. CYMBALTA [Concomitant]
     Dosage: 20 MG, UNK
  9. NYSTATIN [Concomitant]
     Dosage: UNK, 100000
  10. IBUPROFEN [Concomitant]
     Dosage: 200 MG, UNK
  11. LORTAB [Concomitant]
     Dosage: UNK, 7.5

REACTIONS (2)
  - Pneumonitis [Unknown]
  - Oral candidiasis [Unknown]
